FAERS Safety Report 15387889 (Version 1)
Quarter: 2018Q3

REPORT INFORMATION
  Report Type: Spontaneous
  Country: US (occurrence: US)
  Receive Date: 20180914
  Receipt Date: 20180914
  Transmission Date: 20181010
  Serious: No
  Sender: FDA-Public Use
  Company Number: US-ASTRAZENECA-2018SF07070

PATIENT
  Age: 89 Year
  Sex: Female
  Weight: 80.3 kg

DRUGS (4)
  1. SYMBICORT [Suspect]
     Active Substance: BUDESONIDE\FORMOTEROL FUMARATE DIHYDRATE
     Indication: NASAL CONGESTION
     Dosage: 80/4.5 UG, TWO RESPIRATORY INHALATIONS TWICE A DAY
     Route: 055
     Dates: start: 2018
  2. SYMBICORT [Suspect]
     Active Substance: BUDESONIDE\FORMOTEROL FUMARATE DIHYDRATE
     Indication: ASTHMA
     Dosage: 80/4.5 UG, TWO RESPIRATORY INHALATIONS TWICE A DAY
     Route: 055
     Dates: start: 2018
  3. SYMBICORT [Suspect]
     Active Substance: BUDESONIDE\FORMOTEROL FUMARATE DIHYDRATE
     Indication: ASTHMA
     Dosage: 80/4.5 UG, TWO RESPIRATORY INHALATIONS TWICE A DAY
     Route: 055
  4. SYMBICORT [Suspect]
     Active Substance: BUDESONIDE\FORMOTEROL FUMARATE DIHYDRATE
     Indication: NASAL CONGESTION
     Dosage: 80/4.5 UG, TWO RESPIRATORY INHALATIONS TWICE A DAY
     Route: 055

REACTIONS (8)
  - Nervousness [Not Recovered/Not Resolved]
  - Dizziness [Recovered/Resolved with Sequelae]
  - Product use in unapproved indication [Unknown]
  - Therapy cessation [Unknown]
  - Off label use [Unknown]
  - Hypotension [Recovered/Resolved with Sequelae]
  - Pain in extremity [Recovered/Resolved]
  - Intentional product misuse [Recovered/Resolved]

NARRATIVE: CASE EVENT DATE: 2018
